FAERS Safety Report 6428064-4 (Version None)
Quarter: 2009Q4

REPORT INFORMATION
  Report Type: 
  Country: None (occurrence: None)
  Receive Date: 20091105
  Receipt Date: 20091021
  Transmission Date: 20100525
  Serious: Yes (Other)
  Sender: FDA-Public Use
  Company Number: PHHY2009FR47256

PATIENT
  Sex: Male

DRUGS (6)
  1. FRACTAL [Suspect]
     Indication: HYPERCHOLESTEROLAEMIA
     Dosage: 80 MG, QD
     Route: 048
     Dates: start: 20090424, end: 20090917
  2. PLAVIX [Concomitant]
  3. KARDEGIC [Concomitant]
  4. SECTRAL [Concomitant]
  5. COVERSYL [Concomitant]
  6. MOPRAL [Concomitant]

REACTIONS (2)
  - BLOOD PRESSURE INCREASED [None]
  - CYTOLYTIC HEPATITIS [None]
